FAERS Safety Report 4591008-4 (Version None)
Quarter: 2005Q1

REPORT INFORMATION
  Report Type: 
  Country: None (occurrence: None)
  Receive Date: 20050223
  Receipt Date: 20050223
  Transmission Date: 20050727
  Serious: Yes (Life-Threatening)
  Sender: FDA-Public Use
  Company Number: None

PATIENT
  Age: 18 Year
  Sex: Female
  Weight: 65.7716 kg

DRUGS (2)
  1. EFFEXOR XR [Suspect]
     Indication: CONVERSION DISORDER
     Dosage: 300MG DAILY  ORAL
     Route: 048
     Dates: start: 20030401, end: 20050217
  2. EFFEXOR XR [Suspect]
     Indication: DEPRESSION
     Dosage: 300MG DAILY  ORAL
     Route: 048
     Dates: start: 20030401, end: 20050217

REACTIONS (10)
  - APNOEA [None]
  - CIRCULATORY COLLAPSE [None]
  - DYSPNOEA [None]
  - HAEMATEMESIS [None]
  - HYPERVENTILATION [None]
  - INFLUENZA LIKE ILLNESS [None]
  - LOSS OF CONSCIOUSNESS [None]
  - MUSCLE SPASMS [None]
  - SOMNOLENCE [None]
  - TREMOR [None]
